FAERS Safety Report 5746649-5 (Version None)
Quarter: 2008Q2

REPORT INFORMATION
  Report Type: 
  Country: None (occurrence: None)
  Receive Date: 20080522
  Receipt Date: 20080515
  Transmission Date: 20081010
  Serious: Yes (Congenital Anomaly)
  Sender: FDA-Public Use
  Company Number: GB-ABBOTT-08P-167-0452240-00

PATIENT
  Age: 1 Day
  Sex: Female

DRUGS (1)
  1. VALPROATE SODIUM [Suspect]
     Indication: DRUG EXPOSURE DURING PREGNANCY
     Route: 064

REACTIONS (10)
  - ASTIGMATISM [None]
  - CLUMSY CHILD SYNDROME [None]
  - DRUG EXPOSURE DURING PREGNANCY [None]
  - DYSMORPHISM [None]
  - DYSPRAXIA [None]
  - FOETAL ANTICONVULSANT SYNDROME [None]
  - HYPOKINESIA [None]
  - LEARNING DISORDER [None]
  - NEPHROLITHIASIS [None]
  - PNEUMONIA [None]
